FAERS Safety Report 6477223-3 (Version None)
Quarter: 2009Q4

REPORT INFORMATION
  Report Type: 
  Country: None (occurrence: None)
  Receive Date: 20091207
  Receipt Date: 20091127
  Transmission Date: 20100525
  Serious: Yes (Hospitalization)
  Sender: FDA-Public Use
  Company Number: PHHY2009DK50492

PATIENT
  Sex: Male

DRUGS (16)
  1. GLEEVEC [Suspect]
     Indication: KIDNEY FIBROSIS
     Dosage: 400 MG, UNK
     Dates: start: 20091020, end: 20091105
  2. NEXIUM [Concomitant]
  3. HJERTEMAGNYL [Concomitant]
  4. PHOS-EX [Concomitant]
  5. CARDICOR [Concomitant]
  6. GLUCOSAMINE [Concomitant]
  7. CIPRALEX                                /DEN/ [Concomitant]
  8. ETALPHA [Concomitant]
  9. MAREVAN [Concomitant]
  10. SODIUM POLYSTYRENE SULFONATE [Concomitant]
  11. IPREN [Concomitant]
  12. ACETAMINOPHEN [Concomitant]
  13. KETOGAN [Concomitant]
  14. GASTRO-TIMELETS [Concomitant]
  15. LACTULOSE [Concomitant]
  16. LAXOBERAL [Concomitant]

REACTIONS (5)
  - CHILLS [None]
  - DIARRHOEA [None]
  - GENERAL PHYSICAL HEALTH DETERIORATION [None]
  - PYREXIA [None]
  - SEPSIS [None]
